FAERS Safety Report 7069914-0 (Version None)
Quarter: 2010Q4

REPORT INFORMATION
  Report Type: 
  Country: None (occurrence: None)
  Receive Date: 20101028
  Receipt Date: 20100706
  Transmission Date: 20110411
  Serious: No
  Sender: FDA-Public Use
  Company Number: US-WYE-H16274010

PATIENT
  Age: 82 Year
  Sex: Female
  Weight: 72.19 kg

DRUGS (1)
  1. ADVIL [Suspect]
     Indication: PAIN
     Dates: start: 20100702, end: 20100704

REACTIONS (1)
  - CONSTIPATION [None]
